FAERS Safety Report 9361451 (Version 1)
Quarter: 2013Q2

REPORT INFORMATION
  Report Type: Spontaneous
  Country: US (occurrence: US)
  Receive Date: 20130621
  Receipt Date: 20130621
  Transmission Date: 20140414
  Serious: Yes (Hospitalization)
  Sender: FDA-Public Use
  Company Number: US-SANOFI-AVENTIS-2013SA061640

PATIENT
  Sex: Female
  Weight: 73 kg

DRUGS (9)
  1. PLAVIX [Suspect]
     Route: 048
  2. CYMBALTA [Concomitant]
  3. FLEXERIL [Concomitant]
  4. VALIUM [Concomitant]
  5. OXYCODONE [Concomitant]
  6. METOPROLOL [Concomitant]
  7. LASIX [Concomitant]
  8. PRAVASTATIN [Concomitant]
  9. ASPIRIN [Concomitant]

REACTIONS (3)
  - Accident [Recovered/Resolved]
  - Depression [Recovered/Resolved]
  - Insomnia [Recovered/Resolved]
